FAERS Safety Report 8937188 (Version 1)
Quarter: 2012Q4

REPORT INFORMATION
  Report Type: Spontaneous
  Country: US (occurrence: None)
  Receive Date: 20121128
  Receipt Date: 20121128
  Transmission Date: 20130627
  Serious: Yes (Hospitalization)
  Sender: FDA-Public Use
  Company Number: None

PATIENT
  Age: 82 Year
  Sex: Female
  Weight: 78.1 kg

DRUGS (21)
  1. AMBIEN [Suspect]
     Indication: INSOMNIA
     Dosage: CHRONIC
     Route: 048
  2. MORPHINE [Suspect]
     Dosage: RECENT
     Route: 048
  3. PERCOCET [Suspect]
     Dosage: 2 TABS PO QHR PRN
     Route: 048
  4. FENTANYL [Suspect]
     Dosage: 12MCG PATCH Q3DAYS
     Route: 023
  5. METOPROLOL SANDOZ [Concomitant]
  6. HUMALOG [Concomitant]
  7. LASIX [Concomitant]
  8. LOVENOX [Concomitant]
  9. VASOTEC [Concomitant]
  10. DUONEB [Concomitant]
  11. AMIODARONE [Concomitant]
  12. VIT C [Concomitant]
  13. ALPHAGAN [Concomitant]
  14. ASA [Concomitant]
  15. CARDIZEM CD [Concomitant]
  16. CYMBALTA [Concomitant]
  17. PROTONIX [Concomitant]
  18. POLYETHYLENE [Concomitant]
  19. PREDNISONE [Concomitant]
  20. ZINC SULFATE [Concomitant]
  21. HYDRALAZINE [Concomitant]

REACTIONS (6)
  - Respiratory failure [None]
  - Bradycardia [None]
  - Urine output decreased [None]
  - Somnolence [None]
  - Chronic obstructive pulmonary disease [None]
  - Cardiac failure congestive [None]
